FAERS Safety Report 19266472 (Version 2)
Quarter: 2021Q2

REPORT INFORMATION
  Report Type: Spontaneous
  Country: US (occurrence: US)
  Receive Date: 20210518
  Receipt Date: 20210528
  Transmission Date: 20210717
  Serious: No
  Sender: FDA-Public Use
  Company Number: US-TEVA-2021-US-1909887

PATIENT
  Age: 73 Year
  Sex: Female
  Weight: 63 kg

DRUGS (9)
  1. CIMZIA [Concomitant]
     Active Substance: CERTOLIZUMAB PEGOL
  2. SINGULAIR [Concomitant]
     Active Substance: MONTELUKAST SODIUM
  3. TRAMADOL. [Concomitant]
     Active Substance: TRAMADOL
  4. ZVRTEC [Concomitant]
  5. AUSTEDO [Suspect]
     Active Substance: DEUTETRABENAZINE
     Indication: TREMOR
     Route: 065
     Dates: start: 20210405, end: 20210502
  6. ZOCOR [Concomitant]
     Active Substance: SIMVASTATIN
  7. CYMBALTA [Concomitant]
     Active Substance: DULOXETINE HYDROCHLORIDE
  8. TRAZODONE [Concomitant]
     Active Substance: TRAZODONE HYDROCHLORIDE
  9. VERAPAMIL [Concomitant]
     Active Substance: VERAPAMIL HYDROCHLORIDE
     Dosage: ER 120 MG CAP 24H PEL

REACTIONS (10)
  - Depression [Unknown]
  - Illness [Unknown]
  - Dyskinesia [Unknown]
  - Visual impairment [Unknown]
  - Weight decreased [Unknown]
  - Speech disorder [Unknown]
  - Agitation [Unknown]
  - Palpitations [Unknown]
  - Feeling jittery [Unknown]
  - Drug ineffective [Unknown]

NARRATIVE: CASE EVENT DATE: 202104
